FAERS Safety Report 8525505-3 (Version None)
Quarter: 2012Q3

REPORT INFORMATION
  Report Type: 
  Country: None (occurrence: None)
  Receive Date: 20120720
  Receipt Date: 20120713
  Transmission Date: 20120928
  Serious: Yes (Other)
  Sender: FDA-Public Use
  Company Number: US-JNJFOC-20120400271

PATIENT
  Sex: Male
  Weight: 75.07 kg

DRUGS (9)
  1. REMICADE [Suspect]
     Indication: ANKYLOSING SPONDYLITIS
     Route: 042
     Dates: start: 20030101
  2. REMICADE [Suspect]
     Route: 042
     Dates: start: 20100910
  3. FERROUS SULFATE TAB [Concomitant]
     Route: 065
  4. REMICADE [Suspect]
     Dosage: 8 YEARS
     Route: 042
     Dates: start: 20111031, end: 20111031
  5. LORTAB [Concomitant]
     Indication: PAIN
     Dosage: 7.5/500 MG EVERY 6 HR, AS NECESSARY
     Dates: start: 20030101
  6. LISINOPRIL [Concomitant]
     Indication: HYPERTENSION
  7. SOMA [Concomitant]
     Indication: PAIN
     Dosage: TID, PRN
     Dates: start: 20050201
  8. MOBIC [Concomitant]
     Indication: ARTHRITIS
     Dates: start: 20100517
  9. SOMA [Concomitant]
     Indication: MUSCLE SPASMS
     Dosage: TID, PRN
     Dates: start: 20050201

REACTIONS (1)
  - MORPHOEA [None]
